FAERS Safety Report 10013715 (Version 2)
Quarter: 2014Q2

REPORT INFORMATION
  Report Type: Spontaneous
  Country: US (occurrence: US)
  Receive Date: 20140316
  Receipt Date: 20140515
  Transmission Date: 20141212
  Serious: Yes (Hospitalization)
  Sender: FDA-Public Use
  Company Number: US-BAYER-2014-039029

PATIENT
  Age: 26 Year
  Sex: Female
  Weight: 77.1 kg

DRUGS (3)
  1. MIRENA [Suspect]
     Indication: CONTRACEPTION
     Dosage: 20 MCG/24HR, CONT
     Route: 015
     Dates: start: 200808, end: 20090109
  2. MIRENA [Suspect]
     Indication: MENORRHAGIA
  3. MULTIVITAMIN [Concomitant]
     Route: 048

REACTIONS (9)
  - Device dislocation [None]
  - Device dislocation [None]
  - Abdominal pain lower [None]
  - Ovarian cyst [None]
  - Menorrhagia [None]
  - Injury [None]
  - Pain [None]
  - Emotional distress [None]
  - Procedural pain [None]
